FAERS Safety Report 5212521-2 (Version None)
Quarter: 2007Q1

REPORT INFORMATION
  Report Type: 
  Country: None (occurrence: None)
  Receive Date: 20070118
  Receipt Date: 20070108
  Transmission Date: 20070707
  Serious: Yes (Hospitalization)
  Sender: FDA-Public Use
  Company Number: US-SHR-US-2006-006412

PATIENT
  Age: 62 Year
  Sex: Female

DRUGS (3)
  1. BETASERON [Suspect]
     Indication: SECONDARY PROGRESSIVE MULTIPLE SCLEROSIS
     Dosage: 8 MIU, EVERY 2D
     Route: 058
     Dates: start: 20050912, end: 20051001
  2. VITAMIN B COMPLEX CAP [Concomitant]
  3. MISCELLANEOUS DRUGS [Concomitant]

REACTIONS (3)
  - MULTIPLE SCLEROSIS [None]
  - PNEUMONIA [None]
  - PNEUMONIA ASPIRATION [None]
